FAERS Safety Report 25216225 (Version 1)
Quarter: 2025Q2

REPORT INFORMATION
  Report Type: Spontaneous
  Country: US (occurrence: US)
  Receive Date: 20250418
  Receipt Date: 20250418
  Transmission Date: 20250717
  Serious: No
  Sender: ABBVIE
  Company Number: US-ABBVIE-6239626

PATIENT
  Sex: Female

DRUGS (1)
  1. FML FORTE [Suspect]
     Active Substance: FLUOROMETHOLONE
     Indication: Product used for unknown indication
     Route: 047

REACTIONS (2)
  - Multiple fractures [Unknown]
  - Product packaging quantity issue [Not Recovered/Not Resolved]
